FAERS Safety Report 9796311 (Version 1)
Quarter: 2014Q1

REPORT INFORMATION
  Report Type: Spontaneous
  Country: US (occurrence: US)
  Receive Date: 20140103
  Receipt Date: 20140103
  Transmission Date: 20141002
  Serious: Yes (Other)
  Sender: FDA-Public Use
  Company Number: PHEH2013US026617

PATIENT
  Sex: 0

DRUGS (1)
  1. TASIGNA [Suspect]
     Dosage: UNK
     Route: 048
     Dates: start: 201310

REACTIONS (1)
  - Electrocardiogram QT prolonged [Unknown]
